FAERS Safety Report 11167811 (Version 10)
Quarter: 2020Q4

REPORT INFORMATION
  Report Type: Spontaneous
  Country: US (occurrence: US)
  Receive Date: 20150605
  Receipt Date: 20201002
  Transmission Date: 20210113
  Serious: Yes (Other)
  Sender: FDA-Public Use
  Company Number: US-PFIZER INC-2015187175

PATIENT
  Age: 73 Year
  Sex: Female
  Weight: 86.17 kg

DRUGS (10)
  1. LYRICA [Suspect]
     Active Substance: PREGABALIN
     Indication: RADICULOPATHY
     Dosage: 100 MG, 2X/DAY
  2. VITAMIN D3 [Concomitant]
     Active Substance: CHOLECALCIFEROL
     Dosage: 5000 IU, 2X/DAY
  3. ADVIL PM [Concomitant]
     Active Substance: DIPHENHYDRAMINE CITRATE\IBUPROFEN
     Dosage: 1 DF, 1X/DAY (1 NIGHTLY)
     Dates: start: 20160620
  4. CALCIUM [Concomitant]
     Active Substance: CALCIUM
     Dosage: 1200 MG, 2X/DAY
  5. LYRICA [Suspect]
     Active Substance: PREGABALIN
     Indication: NEUROPATHY PERIPHERAL
     Dosage: 100 MG, 3X/DAY
     Route: 048
  6. AMOXICILLIN. [Concomitant]
     Active Substance: AMOXICILLIN
     Dosage: 500 MG, 3X/DAY
     Dates: start: 20160620
  7. NAPROXEN. [Concomitant]
     Active Substance: NAPROXEN
     Dosage: 500 MG, AS NEEDED
     Dates: start: 20160209
  8. IRON [Concomitant]
     Active Substance: IRON
     Dosage: 65 MG, 2X/DAY
  9. CENTRUM [Concomitant]
     Active Substance: VITAMINS
     Dosage: UNK, 2X/DAY
  10. PRESERVISION AREDS 2 [Concomitant]
     Active Substance: MINERALS\VITAMINS
     Dosage: UNK, 2X/DAY

REACTIONS (8)
  - Pain [Unknown]
  - Tooth fracture [Recovered/Resolved]
  - Diarrhoea [Unknown]
  - Feeling abnormal [Unknown]
  - Wrong dose [Unknown]
  - Hypersensitivity [Recovered/Resolved]
  - Body height decreased [Unknown]
  - Neuropathy peripheral [Unknown]

NARRATIVE: CASE EVENT DATE: 20160306
